FAERS Safety Report 16105917 (Version 1)
Quarter: 2019Q1

REPORT INFORMATION
  Report Type: Spontaneous
  Country: JP (occurrence: JP)
  Receive Date: 20190322
  Receipt Date: 20190322
  Transmission Date: 20190418
  Serious: Yes (Other)
  Sender: FDA-Public Use
  Company Number: JP-PFIZER INC-2019121077

PATIENT

DRUGS (4)
  1. LYRICA [Suspect]
     Active Substance: PREGABALIN
     Dosage: 2 UNK, UNK
  2. GOREISAN [ALISMA PLANTAGO-AQUATICA VAR. ORIENTALE TUBER;ATRACTYLODES S [Concomitant]
  3. LASIX [Concomitant]
     Active Substance: FUROSEMIDE
  4. CEFZON [CEFDINIR] [Concomitant]

REACTIONS (2)
  - Pleural effusion [Not Recovered/Not Resolved]
  - Pulmonary oedema [Not Recovered/Not Resolved]
